FAERS Safety Report 4976128-4 (Version None)
Quarter: 2006Q2

REPORT INFORMATION
  Report Type: 
  Country: None (occurrence: None)
  Receive Date: 20060413
  Receipt Date: 20060330
  Transmission Date: 20061013
  Serious: Yes (Death, Life-Threatening, Hospitalization)
  Sender: FDA-Public Use
  Company Number: CLOF-10008

PATIENT
  Age: 81 Year
  Sex: Male

DRUGS (8)
  1. CLOFARABINE [Suspect]
     Indication: ACUTE MYELOID LEUKAEMIA
     Dosage: 57 MG QD IV
     Route: 042
     Dates: start: 20050425, end: 20050428
  2. FOLIC ACID [Concomitant]
  3. NYSTATIN [Concomitant]
  4. AMPHOTERCIN [Concomitant]
  5. CIPROFLOXACIN HCL [Concomitant]
  6. GRANISETRON [Concomitant]
  7. METOCLOPRAMIDE [Concomitant]
  8. TAZOCIN [Concomitant]

REACTIONS (21)
  - ABDOMINAL DISTENSION [None]
  - ABDOMINAL PAIN [None]
  - ATRIAL FIBRILLATION [None]
  - ATRIAL TACHYCARDIA [None]
  - CARDIAC FAILURE [None]
  - FALL [None]
  - FLUID OVERLOAD [None]
  - GASTRITIS [None]
  - GASTROINTESTINAL DISORDER [None]
  - GASTROINTESTINAL HAEMORRHAGE [None]
  - GASTROOESOPHAGEAL REFLUX DISEASE [None]
  - HYPOTENSION [None]
  - ILEUS PARALYTIC [None]
  - OESOPHAGITIS [None]
  - PANCYTOPENIA [None]
  - PERICARDIAL EFFUSION [None]
  - PNEUMONIA [None]
  - PULMONARY CONGESTION [None]
  - RECTAL HAEMORRHAGE [None]
  - SEPSIS [None]
  - SUPRAVENTRICULAR TACHYCARDIA [None]
